FAERS Safety Report 4836202-X (Version None)
Quarter: 2005Q4

REPORT INFORMATION
  Report Type: 
  Country: None (occurrence: None)
  Receive Date: 20051123
  Receipt Date: 20051027
  Transmission Date: 20060501
  Serious: Yes (Other)
  Sender: FDA-Public Use
  Company Number: US-AMGEN-US155834

PATIENT
  Sex: Female

DRUGS (4)
  1. ENBREL [Suspect]
     Indication: RHEUMATOID ARTHRITIS
     Dates: start: 20050715, end: 20050901
  2. ENBREL [Suspect]
     Dates: start: 20050805, end: 20050822
  3. METHOTREXATE [Concomitant]
     Dates: start: 20030101, end: 20050801
  4. METHOTREXATE [Concomitant]
     Dates: start: 20050801

REACTIONS (8)
  - IMPAIRED HEALING [None]
  - INFECTION [None]
  - LIVER FUNCTION TEST ABNORMAL [None]
  - RED BLOOD CELL COUNT DECREASED [None]
  - SKIN ULCER [None]
  - STAPHYLOCOCCAL INFECTION [None]
  - URINARY TRACT INFECTION [None]
  - WHITE BLOOD CELL COUNT DECREASED [None]
